FAERS Safety Report 12791554 (Version 1)
Quarter: 2016Q3

REPORT INFORMATION
  Report Type: Spontaneous
  Country: US (occurrence: US)
  Receive Date: 20160929
  Receipt Date: 20160929
  Transmission Date: 20161109
  Serious: No
  Sender: FDA-Public Use
  Company Number: US-WATSON-2016-02605

PATIENT
  Age: 53 Year
  Sex: Female

DRUGS (1)
  1. LEVETIRACETAM ER (ACTAVIS LABORATORIES FL) [Suspect]
     Active Substance: LEVETIRACETAM
     Indication: SEIZURE
     Dosage: 500 MG, 2 QHS (TOTAL 1000 MG/DAY)
     Route: 048

REACTIONS (1)
  - Medication residue present [Not Recovered/Not Resolved]
